FAERS Safety Report 16174154 (Version 3)
Quarter: 2020Q2

REPORT INFORMATION
  Report Type: Spontaneous
  Country: CA (occurrence: CA)
  Receive Date: 20190409
  Receipt Date: 20200602
  Transmission Date: 20200713
  Serious: Yes (Other)
  Sender: FDA-Public Use
  Company Number: CA-PFIZER INC-2019151402

PATIENT
  Age: 46 Year
  Sex: Female

DRUGS (15)
  1. TRAMADOL. [Concomitant]
     Active Substance: TRAMADOL
     Dosage: UNK
     Route: 065
  2. COSENTYX [Suspect]
     Active Substance: SECUKINUMAB
     Dosage: 150 MILLIGRAM, 1/WEEK
     Route: 058
  3. NAPROXEN. [Concomitant]
     Active Substance: NAPROXEN
     Dosage: UNK
     Route: 065
     Dates: start: 2016, end: 20180301
  4. PANTOPRAZOLE [Suspect]
     Active Substance: PANTOPRAZOLE
     Dosage: UNK
     Route: 065
  5. COSENTYX [Suspect]
     Active Substance: SECUKINUMAB
     Dosage: 150 MILLIGRAM, MONTHLY
     Route: 058
     Dates: start: 20180617
  6. CELEBREX [Concomitant]
     Active Substance: CELECOXIB
     Dosage: UNK
     Route: 065
  7. HUMIRA [Concomitant]
     Active Substance: ADALIMUMAB
     Dosage: UNK
     Route: 065
     Dates: start: 2016, end: 20180301
  8. COSENTYX [Suspect]
     Active Substance: SECUKINUMAB
     Indication: ANKYLOSING SPONDYLITIS
     Dosage: 150 MILLIGRAM, 1/WEEK
     Route: 058
     Dates: start: 20180320
  9. COSENTYX [Suspect]
     Active Substance: SECUKINUMAB
     Dosage: 300 MILLIGRAM, MONTHLY
     Route: 058
     Dates: start: 20181117
  10. CYCLOBENZAPRINE. [Concomitant]
     Active Substance: CYCLOBENZAPRINE
     Dosage: UNK
     Route: 065
  11. COSENTYX [Suspect]
     Active Substance: SECUKINUMAB
     Dosage: 300 MILLIGRAM, MONTHLY
     Route: 058
     Dates: start: 20181017
  12. INDOMETHACIN [INDOMETACIN] [Suspect]
     Active Substance: INDOMETHACIN
     Dosage: UNK
     Route: 065
  13. SIMPONI [Concomitant]
     Active Substance: GOLIMUMAB
     Dosage: UNK
     Route: 065
     Dates: start: 2015, end: 2016
  14. IBUPROFEN. [Concomitant]
     Active Substance: IBUPROFEN
     Dosage: UNK
     Route: 065
  15. COSENTYX [Suspect]
     Active Substance: SECUKINUMAB
     Dosage: 150 MILLIGRAM, MONTHLY
     Route: 058

REACTIONS (15)
  - Discomfort [Unknown]
  - Contusion [Unknown]
  - Drug ineffective [Unknown]
  - Back pain [Unknown]
  - Pruritus [Unknown]
  - Arthralgia [Unknown]
  - Joint swelling [Unknown]
  - Dry skin [Unknown]
  - Fatigue [Unknown]
  - Neck pain [Unknown]
  - Skin striae [Unknown]
  - Pain [Unknown]
  - Ankylosing spondylitis [Unknown]
  - Musculoskeletal stiffness [Unknown]
  - Somnolence [Unknown]

NARRATIVE: CASE EVENT DATE: 201803
